FAERS Safety Report 4509153-8 (Version None)
Quarter: 2004Q4

REPORT INFORMATION
  Report Type: 
  Country: None (occurrence: None)
  Receive Date: 20041025
  Receipt Date: 20040806
  Transmission Date: 20050328
  Serious: Yes (Other)
  Sender: FDA-Public Use
  Company Number: US-JNJFOC-20040604319

PATIENT
  Age: 43 Year
  Sex: Female
  Weight: 88.4514 kg

DRUGS (9)
  1. REMICADE [Suspect]
     Indication: CROHN'S DISEASE
     Dosage: 450 MG INTRAVENOUS
     Route: 042
     Dates: start: 20031028
  2. REMICADE [Suspect]
     Indication: CROHN'S DISEASE
     Dosage: 450 MG INTRAVENOUS
     Route: 042
     Dates: start: 20031111
  3. REMICADE [Suspect]
     Indication: CROHN'S DISEASE
     Dosage: 450 MG INTRAVENOUS
     Route: 042
     Dates: start: 20031209
  4. REMICADE [Suspect]
     Indication: CROHN'S DISEASE
     Dosage: 450 MG INTRAVENOUS
     Route: 042
     Dates: start: 20040331
  5. REMICADE [Suspect]
     Indication: CROHN'S DISEASE
     Dosage: 450 MG INTRAVENOUS
     Route: 042
     Dates: start: 20040526
  6. MERCAPTOPURINE [Concomitant]
  7. FOLIC ACID [Concomitant]
  8. IRON (IRON) [Concomitant]
  9. ERYTHROPOIETIN (ERYTHROPOIETIN) [Concomitant]

REACTIONS (1)
  - MALIGNANT MELANOMA [None]
